FAERS Safety Report 7512812-6 (Version None)
Quarter: 2011Q2

REPORT INFORMATION
  Report Type: 
  Country: None (occurrence: None)
  Receive Date: 20110531
  Receipt Date: 20110530
  Transmission Date: 20111010
  Serious: Yes (Hospitalization)
  Sender: FDA-Public Use
  Company Number: D0071473A

PATIENT
  Sex: Male
  Weight: 86 kg

DRUGS (6)
  1. AZUPROSTAT [Concomitant]
     Dosage: 130MG PER DAY
     Route: 065
     Dates: start: 20100202, end: 20100325
  2. ZOPICLON [Concomitant]
     Route: 065
     Dates: start: 20100101
  3. LITHIUM CARBONATE [Suspect]
     Indication: DEPRESSION
     Dosage: 675MG PER DAY
     Route: 048
     Dates: start: 20100202, end: 20100303
  4. TRANYLCYPROMINE SULFATE [Suspect]
     Indication: DEPRESSION
     Dosage: 10MG PER DAY
     Route: 065
     Dates: end: 20100101
  5. DECORTIN H [Concomitant]
     Indication: CHRONIC OBSTRUCTIVE PULMONARY DISEASE
     Dosage: 5MG PER DAY
     Route: 065
     Dates: start: 20100202, end: 20100325
  6. LORAZEPAM [Concomitant]
     Indication: ANXIETY
     Dosage: 2.5MG PER DAY
     Route: 065
     Dates: start: 20100204, end: 20100325

REACTIONS (7)
  - CONFUSIONAL STATE [None]
  - TOXICITY TO VARIOUS AGENTS [None]
  - APPETITE DISORDER [None]
  - ILL-DEFINED DISORDER [None]
  - FATIGUE [None]
  - DRUG INTERACTION [None]
  - TREMOR [None]
